FAERS Safety Report 8344379-7 (Version None)
Quarter: 2012Q2

REPORT INFORMATION
  Report Type: 
  Country: None (occurrence: None)
  Receive Date: 20120508
  Receipt Date: 20120426
  Transmission Date: 20120825
  Serious: Yes (Other)
  Sender: FDA-Public Use
  Company Number: US-ROCHE-1066451

PATIENT
  Sex: Male

DRUGS (8)
  1. BLINDED ALISPORIVIR [Suspect]
     Indication: HEPATITIS C
     Route: 048
     Dates: start: 20110906, end: 20111212
  2. CALCIUM CARBONATE [Concomitant]
     Dates: start: 20110901
  3. ACETAMINOPHEN [Concomitant]
     Dates: start: 20110913
  4. ZOPICLONE [Concomitant]
  5. CITALOPRAM [Suspect]
     Indication: DEPRESSION
     Dates: start: 20111128, end: 20111208
  6. METOCLOPRAMIDE [Concomitant]
     Dates: start: 20110913
  7. LISINOPRIL [Concomitant]
     Dates: start: 20100101
  8. PEGASYS [Suspect]
     Indication: HEPATITIS C

REACTIONS (3)
  - DEPRESSION [None]
  - DRUG INTERACTION [None]
  - ANXIETY [None]
